FAERS Safety Report 4896087-2 (Version None)
Quarter: 2005Q4

REPORT INFORMATION
  Report Type: 
  Country: None (occurrence: None)
  Receive Date: 20051220
  Receipt Date: 20050909
  Transmission Date: 20060501
  Serious: Yes (Hospitalization, Other)
  Sender: FDA-Public Use
  Company Number: US149901

PATIENT
  Age: 66 Year
  Sex: Female
  Weight: 68.1 kg

DRUGS (11)
  1. ENBREL [Suspect]
     Indication: RHEUMATOID ARTHRITIS
     Dosage: 25 MG, 2 IN 1 WEEKS, SC
     Route: 058
     Dates: start: 19990101, end: 20050902
  2. ACTONEL [Concomitant]
  3. PREDNISONE [Concomitant]
  4. TOPROL-XL [Concomitant]
  5. AMLODIPINE BESYLATE [Concomitant]
  6. SIMVASTATIN [Concomitant]
  7. CARBAMAZEPINE [Concomitant]
  8. OMEPRAZOLE [Concomitant]
  9. PAROXETINE HYDROCHLORIDE [Concomitant]
  10. SULFASALAZINE [Concomitant]
  11. CALCIUM WITH VITAMIN D [Concomitant]

REACTIONS (1)
  - BREAST CANCER [None]
